FAERS Safety Report 11314866 (Version 1)
Quarter: 2015Q3

REPORT INFORMATION
  Report Type: Spontaneous
  Country: US (occurrence: US)
  Receive Date: 20150727
  Receipt Date: 20150727
  Transmission Date: 20151125
  Serious: No
  Sender: FDA-Public Use
  Company Number: US-BANPHARM-20143198

PATIENT

DRUGS (1)
  1. VALPROIC ACID CAPSULES 250 MG [Suspect]
     Active Substance: VALPROIC ACID
     Route: 048

REACTIONS (1)
  - Headache [Unknown]
